FAERS Safety Report 19383380 (Version 1)
Quarter: 2021Q2

REPORT INFORMATION
  Report Type: Spontaneous
  Country: FR (occurrence: FR)
  Receive Date: 20210607
  Receipt Date: 20210607
  Transmission Date: 20210717
  Serious: Yes (Other)
  Sender: FDA-Public Use
  Company Number: FR-MYLANLABS-2021M1032504

PATIENT
  Age: 44 Year
  Sex: Male
  Weight: 58 kg

DRUGS (13)
  1. SKENAN [Concomitant]
     Active Substance: MORPHINE SULFATE
     Dosage: 20 MILLIGRAM, QD
     Dates: start: 20201125
  2. RIFAMPICINE [Concomitant]
     Active Substance: RIFAMPIN
     Indication: TUBERCULOSIS
     Dosage: UNK
     Route: 042
     Dates: start: 20200820, end: 20200909
  3. ISONIAZIDE [Concomitant]
     Active Substance: ISONIAZID
     Dosage: 200 MILLIGRAM
     Route: 042
     Dates: start: 20200820, end: 20201127
  4. AMIKLIN                            /00391001/ [Concomitant]
     Active Substance: AMIKACIN SULFATE
     Dosage: 15 MILLIGRAM/KILOGRAM, Q2D
     Route: 042
     Dates: start: 20200828, end: 20201117
  5. DOLIPRANE [Concomitant]
     Active Substance: ACETAMINOPHEN
     Dosage: 500 MILLIGRAM
     Dates: start: 20201125
  6. PANTOPRAZOLE [Concomitant]
     Active Substance: PANTOPRAZOLE
     Dosage: 40 MILLIGRAM
     Dates: start: 20201125, end: 20201126
  7. ACTISKENAN [Concomitant]
     Active Substance: MORPHINE SULFATE
     Dosage: 20 MILLIGRAM, QD
     Dates: start: 20201125
  8. LINEZOLID. [Suspect]
     Active Substance: LINEZOLID
     Indication: TUBERCULOSIS
     Dosage: 600 MILLIGRAM, QD
     Route: 048
     Dates: start: 20201117, end: 20201127
  9. LEVOFLOXACIN. [Suspect]
     Active Substance: LEVOFLOXACIN
     Indication: PRODUCT USED FOR UNKNOWN INDICATION
     Dosage: 500 MILLIGRAM, BID
     Route: 042
     Dates: start: 20200828, end: 20201127
  10. FUNGIZON [Concomitant]
     Dosage: UNK
     Route: 048
     Dates: start: 20201125
  11. ETHAMBUTOL HYDROCHLORIDE. [Concomitant]
     Active Substance: ETHAMBUTOL HYDROCHLORIDE
     Dosage: 1000 MILLIGRAM, QD
     Route: 042
     Dates: start: 20200820, end: 20201127
  12. ALDACTONE [Concomitant]
     Active Substance: SPIRONOLACTONE
     Dosage: 50 MILLIGRAM, QD
     Dates: start: 20201125
  13. BECILAN [Concomitant]
     Active Substance: PYRIDOXINE
     Dosage: 250 MILLIGRAM
     Route: 048

REACTIONS (2)
  - Confusional state [Recovering/Resolving]
  - Overdose [Recovered/Resolved]

NARRATIVE: CASE EVENT DATE: 20201117
